FAERS Safety Report 13282580 (Version 1)
Quarter: 2017Q1

REPORT INFORMATION
  Report Type: Report from Study
  Country: US (occurrence: US)
  Receive Date: 20170301
  Receipt Date: 20170301
  Transmission Date: 20170428
  Serious: Yes (Other)
  Sender: FDA-Public Use
  Company Number: US-BAYER-2015-450340

PATIENT
  Age: 64 Year
  Sex: Male

DRUGS (3)
  1. STIVARGA [Suspect]
     Active Substance: REGORAFENIB
     Indication: RECTAL CANCER
     Dosage: 80 MG, QD
     Route: 048
     Dates: start: 20151019
  2. STIVARGA [Suspect]
     Active Substance: REGORAFENIB
     Indication: RECTAL CANCER
     Dosage: 160 MG, QD
     Route: 048
     Dates: start: 20151012
  3. STIVARGA [Suspect]
     Active Substance: REGORAFENIB
     Indication: RECTAL CANCER
     Dosage: 160 MG DAILY DOSE BY MOUTH . 21 DAYS ON AND 7 DAYS OFF.
     Route: 048
     Dates: start: 20161104, end: 201611

REACTIONS (11)
  - Fatigue [None]
  - Dysphonia [Not Recovered/Not Resolved]
  - Pain in extremity [Not Recovered/Not Resolved]
  - Malaise [Unknown]
  - Oral pain [None]
  - Erythema [None]
  - Pain in extremity [None]
  - Adverse drug reaction [None]
  - Dysphagia [None]
  - Blister [None]
  - Glossodynia [None]

NARRATIVE: CASE EVENT DATE: 201510
